FAERS Safety Report 8061968-8 (Version None)
Quarter: 2012Q1

REPORT INFORMATION
  Report Type: 
  Country: None (occurrence: None)
  Receive Date: 20120118
  Receipt Date: 20120109
  Transmission Date: 20120608
  Serious: Yes (Death)
  Sender: FDA-Public Use
  Company Number: JPI-P-003693

PATIENT
  Age: 80 Year
  Sex: Male

DRUGS (8)
  1. XYREM [Suspect]
     Indication: NARCOLEPSY
     Dosage: SEE IMAGE
     Route: 048
     Dates: start: 20070701, end: 20080519
  2. XYREM [Suspect]
     Indication: NARCOLEPSY
     Dosage: SEE IMAGE
     Route: 048
     Dates: start: 20070921, end: 20070925
  3. XYREM [Suspect]
     Indication: NARCOLEPSY
     Dosage: SEE IMAGE
     Route: 048
     Dates: start: 20070101, end: 20070101
  4. XYREM [Suspect]
     Indication: NARCOLEPSY
     Dosage: SEE IMAGE
     Route: 048
     Dates: start: 20070926, end: 20070101
  5. XYREM [Suspect]
     Indication: NARCOLEPSY
     Dosage: SEE IMAGE
     Route: 048
     Dates: start: 20070101
  6. DIVALPROEX SODIUM [Concomitant]
  7. NAPROXEN [Concomitant]
  8. PROPOXEPHENE HYDROCHLORIDE AND ACETAMINOPHEN [Concomitant]

REACTIONS (17)
  - ABNORMAL DREAMS [None]
  - DYSKINESIA [None]
  - DISEASE PROGRESSION [None]
  - PARKINSON'S DISEASE [None]
  - MUSCLE SPASMS [None]
  - PARANOIA [None]
  - COMPLEX PARTIAL SEIZURES [None]
  - BIOPSY PROSTATE ABNORMAL [None]
  - NIGHTMARE [None]
  - URINARY TRACT INFECTION [None]
  - CHEST PAIN [None]
  - HYPNAGOGIC HALLUCINATION [None]
  - CONFUSIONAL STATE [None]
  - DISORIENTATION [None]
  - LOWER RESPIRATORY TRACT INFECTION [None]
  - BACK PAIN [None]
  - CHRONIC OBSTRUCTIVE PULMONARY DISEASE [None]
